FAERS Safety Report 10871746 (Version 1)
Quarter: 2015Q1

REPORT INFORMATION
  Report Type: Spontaneous
  Country: US (occurrence: US)
  Receive Date: 20150226
  Receipt Date: 20150226
  Transmission Date: 20150721
  Serious: No
  Sender: FDA-Public Use
  Company Number: US-MYLANLABS-2014S1016919

PATIENT
  Age: 61 Year
  Sex: Female

DRUGS (1)
  1. METOPROLOL [Suspect]
     Active Substance: METOPROLOL

REACTIONS (2)
  - Unevaluable event [Not Recovered/Not Resolved]
  - Rash [Not Recovered/Not Resolved]
